FAERS Safety Report 22325709 (Version 1)
Quarter: 2023Q2

REPORT INFORMATION
  Report Type: Spontaneous
  Country: US (occurrence: None)
  Receive Date: 20230515
  Receipt Date: 20230515
  Transmission Date: 20230722
  Serious: Yes (Hospitalization)
  Sender: FDA-Public Use
  Company Number: None

PATIENT
  Sex: Female

DRUGS (4)
  1. OPSUMIT [Suspect]
     Active Substance: MACITENTAN
     Indication: Pulmonary arterial hypertension
     Dosage: FREQUENCY : DAILY;?
     Route: 048
     Dates: start: 202207
  2. TYVASO [Suspect]
     Active Substance: TREPROSTINIL
  3. UPTRAVI [Suspect]
     Active Substance: SELEXIPAG
  4. ADEMPAS [Suspect]
     Active Substance: RIOCIGUAT

REACTIONS (5)
  - Choking [None]
  - Pain in jaw [None]
  - Micturition urgency [None]
  - Urinary retention [None]
  - Oropharyngeal pain [None]
